FAERS Safety Report 9331769 (Version 1)
Quarter: 2013Q2

REPORT INFORMATION
  Report Type: Spontaneous
  Country: US (occurrence: None)
  Receive Date: 20130603
  Receipt Date: 20130603
  Transmission Date: 20140414
  Serious: Yes (Other)
  Sender: FDA-Public Use
  Company Number: 2013P1006156

PATIENT
  Age: 66 Year
  Sex: Female
  Weight: 72.58 kg

DRUGS (4)
  1. ISOSORBIDE MONONITRATE EXTENDED RELEASE [Suspect]
     Indication: PRINZMETAL ANGINA
     Dosage: DOSAGE TAKEN IN THE A.M.
     Route: 048
     Dates: end: 2011
  2. ISOSORBIDE [Concomitant]
     Indication: PRINZMETAL ANGINA
     Dates: start: 2011, end: 2011
  3. VERELAN PM [Concomitant]
  4. VERAPAMIL [Concomitant]

REACTIONS (7)
  - Angina pectoris [None]
  - Malaise [None]
  - Raynaud^s phenomenon [None]
  - Condition aggravated [None]
  - Arrhythmia [None]
  - Atrial fibrillation [None]
  - Product quality issue [None]
